FAERS Safety Report 9665177 (Version 1)
Quarter: 2013Q4

REPORT INFORMATION
  Report Type: Spontaneous
  Country: US (occurrence: US)
  Receive Date: 20131101
  Receipt Date: 20131101
  Transmission Date: 20140711
  Serious: Yes (Other)
  Sender: FDA-Public Use
  Company Number: PHEH2013US022851

PATIENT
  Age: 64 Year
  Sex: Female

DRUGS (9)
  1. DIOVAN HCT [Suspect]
     Indication: HYPERTENSION
     Dosage: 1 DF, (160/ 12,5 MG)
     Route: 048
  2. DIOVAN HCT [Suspect]
     Dosage: 1 DF, (160/ 25 MG)
     Route: 048
  3. METFORMIN [Suspect]
  4. PAROXETINE [Suspect]
  5. PRAVASTATIN [Suspect]
  6. VITAMIN D [Suspect]
  7. GLUMETZA [Suspect]
  8. JANUVIA [Suspect]
  9. BABY ASPIRIN [Suspect]

REACTIONS (6)
  - Irritable bowel syndrome [Unknown]
  - Defaecation urgency [Unknown]
  - Diabetes mellitus [Unknown]
  - Blood glucose decreased [Unknown]
  - Joint swelling [Unknown]
  - Drug intolerance [Unknown]
